FAERS Safety Report 14249256 (Version 1)
Quarter: 2017Q4

REPORT INFORMATION
  Report Type: Report from Study
  Country: US (occurrence: US)
  Receive Date: 20171204
  Receipt Date: 20171204
  Transmission Date: 20180321
  Serious: Yes (Death, Other)
  Sender: FDA-Public Use
  Company Number: US-PROMETHEUS LABORATORIES-2017PL000090

PATIENT
  Age: 64 Year
  Sex: Female

DRUGS (2)
  1. PROLEUKIN [Suspect]
     Active Substance: ALDESLEUKIN
     Indication: RENAL CELL CARCINOMA
     Dosage: 600 KIU, EVERY 8 HOURS
     Route: 042
     Dates: start: 20110829, end: 20110902
  2. PROLEUKIN [Suspect]
     Active Substance: ALDESLEUKIN
     Dosage: 600 KIU, EVERY 8 HOURS
     Route: 042
     Dates: start: 20110912, end: 20110915

REACTIONS (9)
  - Autoimmune hypothyroidism [Not Recovered/Not Resolved]
  - Hypoxia [Recovered/Resolved]
  - Diarrhoea [Not Recovered/Not Resolved]
  - Oliguria [Not Recovered/Not Resolved]
  - Thrombocytopenia [Not Recovered/Not Resolved]
  - Hypotension [Not Recovered/Not Resolved]
  - Acute kidney injury [Not Recovered/Not Resolved]
  - Disease progression [Fatal]
  - Acidosis [Not Recovered/Not Resolved]

NARRATIVE: CASE EVENT DATE: 20110830
